FAERS Safety Report 8489084-1 (Version None)
Quarter: 2012Q3

REPORT INFORMATION
  Report Type: 
  Country: None (occurrence: None)
  Receive Date: 20120705
  Receipt Date: 20120628
  Transmission Date: 20120928
  Serious: Yes (Hospitalization, Other)
  Sender: FDA-Public Use
  Company Number: US-BAYER-2012-056075

PATIENT
  Age: 58 Year
  Sex: Male

DRUGS (6)
  1. KOGENATE FS [Suspect]
     Dosage: UNK
     Dates: start: 20081201, end: 20101201
  2. KOGENATE FS [Suspect]
     Dosage: UNK
     Dates: start: 20110401
  3. KOGENATE FS [Suspect]
     Indication: HAEMOPHILIA
     Dosage: CONTINUOUS INFUSION
     Dates: start: 20110101, end: 20110101
  4. KOGENATE FS [Suspect]
     Dosage: PROPHYLAXIS
     Dates: start: 20110101
  5. KOGENATE FS [Suspect]
     Indication: FACTOR VIII DEFICIENCY
     Dosage: ON DEMAND USE
     Dates: start: 20100101
  6. KOGENATE FS [Suspect]
     Dosage: UNK
     Dates: start: 20110401, end: 20110801

REACTIONS (2)
  - ANTI FACTOR VIII ANTIBODY POSITIVE [None]
  - HAEMORRHAGE [None]
